FAERS Safety Report 6464986-6 (Version None)
Quarter: 2009Q4

REPORT INFORMATION
  Report Type: 
  Country: None (occurrence: None)
  Receive Date: 20091123
  Receipt Date: 20091105
  Transmission Date: 20100525
  Serious: Yes (Other)
  Sender: FDA-Public Use
  Company Number: 1-20651201

PATIENT
  Age: 58 Year
  Sex: Male

DRUGS (2)
  1. WARFARIN SODIUM [Suspect]
     Indication: ATRIAL FIBRILLATION
     Dosage: 3 + 4 MG DAILY, QOD, ORAL TAKING FOR 7 YEARS TO ONGOING
     Route: 048
  2. FLOXACILLIN SODIUM [Suspect]
     Dosage: ORAL DAY 12 TO DAY 17
     Route: 048

REACTIONS (2)
  - DRUG INTERACTION [None]
  - INTERNATIONAL NORMALISED RATIO DECREASED [None]
